FAERS Safety Report 9069246 (Version 1)
Quarter: 2013Q1

REPORT INFORMATION
  Report Type: Report from Study
  Country: US (occurrence: US)
  Receive Date: 20130131
  Receipt Date: 20130131
  Transmission Date: 20140127
  Serious: No
  Sender: FDA-Public Use
  Company Number: US-ABBOTT-12P-163-0999073-00

PATIENT
  Age: 62 Year
  Sex: Male

DRUGS (9)
  1. HUMIRA [Suspect]
     Indication: PSORIATIC ARTHROPATHY
     Dates: start: 20120914
  2. COLCRYS [Concomitant]
     Indication: GOUT
  3. INDOCIN [Concomitant]
     Indication: ARTHRITIS
  4. PREDNISONE [Concomitant]
     Indication: ARTHRITIS
  5. MAGNESIUM [Concomitant]
     Indication: ASTHENIA
  6. MAGNESIUM [Concomitant]
     Indication: MUSCLE SPASMS
  7. CENTRUM SILVER [Concomitant]
     Indication: PRODUCT USED FOR UNKNOWN INDICATION
  8. FISH OIL [Concomitant]
     Indication: PRODUCT USED FOR UNKNOWN INDICATION
  9. MILK THISTLE [Concomitant]
     Indication: HEPATIC FUNCTION ABNORMAL

REACTIONS (3)
  - Injection site pain [Recovering/Resolving]
  - Injection site pruritus [Recovering/Resolving]
  - Injection site erythema [Recovering/Resolving]
